FAERS Safety Report 5344402-8 (Version None)
Quarter: 2007Q2

REPORT INFORMATION
  Report Type: 
  Country: None (occurrence: None)
  Receive Date: 20070604
  Receipt Date: 20070531
  Transmission Date: 20071010
  Serious: Yes (Disabling)
  Sender: FDA-Public Use
  Company Number: US-GENENTECH-235400

PATIENT
  Age: 56 Year
  Sex: Female

DRUGS (3)
  1. RITUXAN [Suspect]
     Indication: ANAEMIA HAEMOLYTIC AUTOIMMUNE
     Dosage: 100 MG, UNK
     Route: 042
     Dates: start: 20000101
  2. PREDNISONE TAB [Concomitant]
     Indication: DRUG USE FOR UNKNOWN INDICATION
     Dosage: 40 MG, UNK
  3. PREDNISONE TAB [Concomitant]
     Dosage: 5 MG, UNK

REACTIONS (2)
  - DIABETES MELLITUS [None]
  - VISION BLURRED [None]
